FAERS Safety Report 18744691 (Version 3)
Quarter: 2021Q1

REPORT INFORMATION
  Report Type: Spontaneous
  Country: CA (occurrence: CA)
  Receive Date: 20210115
  Receipt Date: 20210312
  Transmission Date: 20210419
  Serious: Yes (Other)
  Sender: FDA-Public Use
  Company Number: CA-APOTEX-2021AP001246

PATIENT

DRUGS (3)
  1. PAXIL [Suspect]
     Active Substance: PAROXETINE HYDROCHLORIDE
     Indication: DEPRESSION
     Dosage: UNK
     Route: 048
     Dates: start: 201710, end: 2017
  2. LAMICTAL [Suspect]
     Active Substance: LAMOTRIGINE
     Indication: DEPRESSION
     Dosage: UNK
     Route: 048
     Dates: start: 2018, end: 2019
  3. PAXIL CR [Suspect]
     Active Substance: PAROXETINE HYDROCHLORIDE
     Indication: DEPRESSION
     Dosage: UNK
     Route: 048
     Dates: start: 201710, end: 2017

REACTIONS (9)
  - Product used for unknown indication [Unknown]
  - Abnormal dreams [Recovered/Resolved]
  - Thinking abnormal [Recovered/Resolved]
  - Cerebral disorder [Recovered/Resolved]
  - Disturbance in attention [Recovered/Resolved]
  - Abdominal pain [Recovered/Resolved]
  - Amnesia [Recovered/Resolved]
  - Poisoning [Recovered/Resolved]
  - Irritable bowel syndrome [Recovered/Resolved]
